FAERS Safety Report 24179338 (Version 1)
Quarter: 2024Q3

REPORT INFORMATION
  Report Type: Report from Study
  Country: US (occurrence: US)
  Receive Date: 20240806
  Receipt Date: 20240806
  Transmission Date: 20241017
  Serious: Yes (Other)
  Sender: ROCHE
  Company Number: US-ROCHE-10000043018

PATIENT
  Age: 57 Year
  Sex: Male
  Weight: 86.18 kg

DRUGS (5)
  1. OCREVUS [Suspect]
     Active Substance: OCRELIZUMAB
     Indication: Primary progressive multiple sclerosis
     Dosage: ^FULL BAG OF FLUIDS^
     Route: 042
     Dates: start: 2017
  2. BIOTIN [Concomitant]
     Active Substance: BIOTIN
     Indication: Multiple sclerosis
     Dosage: VITAMIN B, HIGH DOSE
     Route: 048
     Dates: start: 20240708
  3. AZELASTINE [Concomitant]
     Active Substance: AZELASTINE\AZELASTINE HYDROCHLORIDE
     Dosage: AT NIGHT, ONCE SPRAY PER NOSTRIL
     Route: 045
     Dates: start: 2023
  4. VITAMIN B3 [Concomitant]
     Active Substance: NIACIN
     Indication: Multiple sclerosis
     Dosage: IN THE MORNING
     Route: 048
     Dates: start: 2019
  5. PAXLOVID [Concomitant]
     Active Substance: NIRMATRELVIR\RITONAVIR
     Dates: start: 20220515

REACTIONS (6)
  - COVID-19 [Recovered/Resolved]
  - Balance disorder [Not Recovered/Not Resolved]
  - Motor dysfunction [Recovered/Resolved]
  - Fall [Unknown]
  - Malignant melanoma [Recovered/Resolved]
  - Off label use [Unknown]

NARRATIVE: CASE EVENT DATE: 20170101
